APPROVED DRUG PRODUCT: BENDECTIN
Active Ingredient: DOXYLAMINE SUCCINATE; PYRIDOXINE HYDROCHLORIDE
Strength: 10MG;10MG **Federal Register determination that product was not discontinued or withdrawn for safety or effectiveness reasons**
Dosage Form/Route: TABLET, EXTENDED RELEASE;ORAL
Application: N010598 | Product #002
Applicant: SANOFI AVENTIS US LLC
Approved: Approved Prior to Jan 1, 1982 | RLD: No | RS: No | Type: DISCN